FAERS Safety Report 21504994 (Version 5)
Quarter: 2022Q4

REPORT INFORMATION
  Report Type: Report from Study
  Country: ES (occurrence: ES)
  Receive Date: 20221025
  Receipt Date: 20221213
  Transmission Date: 20230113
  Serious: Yes (Life-Threatening)
  Sender: FDA-Public Use
  Company Number: ES-AMGEN-ESPCT2022183464

PATIENT
  Age: 8 Year
  Sex: Male

DRUGS (96)
  1. CARFILZOMIB [Suspect]
     Active Substance: CARFILZOMIB
     Indication: Acute lymphocytic leukaemia
     Dosage: 53 MILLIGRAM
     Route: 040
     Dates: start: 20220822
  2. METHOTREXATE [Suspect]
     Active Substance: METHOTREXATE
     Indication: Acute lymphocytic leukaemia
     Dosage: 12 MILLIGRAM
     Route: 029
     Dates: start: 20221006, end: 20221020
  3. SULFAMETHOXAZOLE\TRIMETHOPRIM [Concomitant]
     Active Substance: SULFAMETHOXAZOLE\TRIMETHOPRIM
     Dosage: 68 MILLIGRAM
     Route: 048
     Dates: start: 20211118
  4. OMEPRAZOLE [Concomitant]
     Active Substance: OMEPRAZOLE
     Dosage: 20 MILLIGRAM
     Route: 042
     Dates: start: 20220802
  5. OMEPRAZOLE [Concomitant]
     Active Substance: OMEPRAZOLE
     Dosage: 20 MILLIGRAM
     Route: 042
     Dates: start: 20220802, end: 20221029
  6. OMEPRAZOLE [Concomitant]
     Active Substance: OMEPRAZOLE
  7. ONDANSETRON [Concomitant]
     Active Substance: ONDANSETRON
     Dosage: 4 MILLIGRAM
     Route: 042
     Dates: start: 20220822
  8. MICAFUNGIN [Concomitant]
     Active Substance: MICAFUNGIN
     Dosage: 80 MILLIGRAM
     Route: 042
     Dates: start: 20220722
  9. ACYCLOVIR [Concomitant]
     Active Substance: ACYCLOVIR
     Dosage: 200 MILLIGRAM
     Route: 048
     Dates: start: 20220126, end: 20221025
  10. ACYCLOVIR [Concomitant]
     Active Substance: ACYCLOVIR
     Dosage: 240 MILLIGRAM
     Route: 048
     Dates: start: 20221026
  11. ACYCLOVIR [Concomitant]
     Active Substance: ACYCLOVIR
     Dosage: 200 MILLIGRAM
     Route: 048
     Dates: start: 20220126, end: 20221022
  12. ACYCLOVIR [Concomitant]
     Active Substance: ACYCLOVIR
     Dosage: 500 MILLIGRAM
     Route: 042
     Dates: start: 20221023, end: 20221025
  13. DEXCHLORPHENIRAMINE [Concomitant]
     Active Substance: DEXCHLORPHENIRAMINE
     Dosage: 3 MILLIGRAM
     Route: 042
     Dates: start: 20221013, end: 20221013
  14. METAMIZOLE [Concomitant]
     Active Substance: METAMIZOLE
     Dosage: 850 MILLIGRAM
     Route: 042
     Dates: start: 20221018
  15. ACETAMINOPHEN [Concomitant]
     Active Substance: ACETAMINOPHEN
     Dosage: 350 MILLIGRAM
     Route: 042
     Dates: start: 20221018
  16. PIPERACILLIN SODIUM\TAZOBACTAM SODIUM [Concomitant]
     Active Substance: PIPERACILLIN SODIUM\TAZOBACTAM SODIUM
     Dosage: 3000 MILLIGRAM
     Route: 042
     Dates: start: 20221013, end: 20221017
  17. CEFTAZIDIME [Concomitant]
     Active Substance: CEFTAZIDIME
     Dosage: 1400 MILLIGRAM
     Route: 042
     Dates: start: 20221017, end: 20221022
  18. ALBUMIN HUMAN [Concomitant]
     Active Substance: ALBUMIN HUMAN
     Dosage: 20 GRAM
     Route: 042
     Dates: start: 20221016, end: 20221016
  19. URSODIOL [Concomitant]
     Active Substance: URSODIOL
     Dosage: 350 MILLIGRAM
     Route: 048
     Dates: start: 20220724
  20. PEG/L-ASPARAGINASE [Concomitant]
     Active Substance: PEGASPARGASE
     Dosage: 950 INTERNATIONAL UNIT
     Dates: start: 20221020, end: 20221020
  21. VINCRISTINE [Concomitant]
     Active Substance: VINCRISTINE
     Dosage: 1.4 MILLIGRAM
     Dates: start: 20221020, end: 20221027
  22. VINCRISTINE [Concomitant]
     Active Substance: VINCRISTINE
  23. VINCRISTINE [Concomitant]
     Active Substance: VINCRISTINE
  24. CYCLOPHOSPHAMIDE [Concomitant]
     Active Substance: CYCLOPHOSPHAMIDE
     Dosage: 950 MILLIGRAM
     Dates: start: 20221006, end: 20221006
  25. DEXAMETHASONE [Concomitant]
     Active Substance: DEXAMETHASONE
     Dosage: 2.8 MILLIGRAM
     Dates: start: 20221006, end: 20221021
  26. DEXAMETHASONE [Concomitant]
     Active Substance: DEXAMETHASONE
  27. DEXAMETHASONE [Concomitant]
     Active Substance: DEXAMETHASONE
  28. DEXAMETHASONE [Concomitant]
     Active Substance: DEXAMETHASONE
  29. AMIKACIN [Concomitant]
     Active Substance: AMIKACIN
     Dosage: UNK
     Route: 042
     Dates: start: 20220823
  30. HYDROCORTISONE [Concomitant]
     Active Substance: HYDROCORTISONE
     Dosage: UNK
     Dates: start: 20220901, end: 20221031
  31. HYDROCORTISONE [Concomitant]
     Active Substance: HYDROCORTISONE
     Dosage: 5 MILLIGRAM
     Route: 048
     Dates: start: 20221105
  32. HYDROCORTISONE [Concomitant]
     Active Substance: HYDROCORTISONE
     Dosage: 5 MILLIGRAM
     Route: 048
     Dates: start: 20220901, end: 20221017
  33. HYDROCORTISONE [Concomitant]
     Active Substance: HYDROCORTISONE
     Dosage: 25 MILLIGRAM
     Route: 042
     Dates: start: 20221013, end: 20221013
  34. HYDROCORTISONE [Concomitant]
     Active Substance: HYDROCORTISONE
     Dosage: 5 MILLIGRAM
     Route: 048
     Dates: start: 20221018, end: 20221018
  35. HYDROCORTISONE [Concomitant]
     Active Substance: HYDROCORTISONE
     Dosage: 5 MILLIGRAM
     Route: 048
     Dates: start: 20221019, end: 20221020
  36. HYDROCORTISONE [Concomitant]
     Active Substance: HYDROCORTISONE
     Dosage: 5 MILLIGRAM
     Route: 048
     Dates: start: 20221022, end: 20221031
  37. LEVOFLOXACIN [Concomitant]
     Active Substance: LEVOFLOXACIN
     Dosage: 250 MILLIGRAM
     Route: 048
     Dates: start: 20220909
  38. LEVOFLOXACIN [Concomitant]
     Active Substance: LEVOFLOXACIN
     Dosage: 280 MILLIGRAM
     Route: 048
     Dates: start: 20221103
  39. LEVOFLOXACIN [Concomitant]
     Active Substance: LEVOFLOXACIN
     Dosage: 250 MILLIGRAM
     Route: 048
     Dates: start: 20220909, end: 20221007
  40. LEVOFLOXACIN [Concomitant]
     Active Substance: LEVOFLOXACIN
     Dosage: 250 MILLIGRAM
     Route: 048
     Dates: start: 20221013
  41. CEFEPIME [Concomitant]
     Active Substance: CEFEPIME HYDROCHLORIDE
     Dosage: 1400 MILLIGRAM
     Route: 042
     Dates: start: 20221007, end: 20221013
  42. CEFEPIME [Concomitant]
     Active Substance: CEFEPIME HYDROCHLORIDE
     Dosage: 1400 MILLIGRAM
     Route: 042
     Dates: start: 20221007, end: 20221009
  43. CEFEPIME [Concomitant]
     Active Substance: CEFEPIME HYDROCHLORIDE
     Dosage: 1400 MILLIGRAM
     Route: 042
     Dates: start: 20221010, end: 20221013
  44. ENALAPRIL [Concomitant]
     Active Substance: ENALAPRIL
     Dosage: UNK
     Dates: start: 20221016, end: 20221106
  45. ENALAPRIL [Concomitant]
     Active Substance: ENALAPRIL
     Dosage: 10 MILLIGRAM
     Route: 042
     Dates: start: 20221016, end: 20221017
  46. ENALAPRIL [Concomitant]
     Active Substance: ENALAPRIL
     Dosage: 15 MILLIGRAM
     Route: 048
     Dates: start: 20221018, end: 20221022
  47. ENALAPRIL [Concomitant]
     Active Substance: ENALAPRIL
     Dosage: 15 MILLIGRAM
     Route: 048
     Dates: start: 20221023, end: 20221106
  48. VANCOMYCIN [Concomitant]
     Active Substance: VANCOMYCIN
     Dosage: UNK
     Dates: start: 20221011, end: 20221026
  49. VANCOMYCIN [Concomitant]
     Active Substance: VANCOMYCIN
     Dosage: 280 MILLIGRAM
     Route: 048
     Dates: start: 20221011, end: 20221021
  50. VANCOMYCIN [Concomitant]
     Active Substance: VANCOMYCIN
     Dosage: 460 MILLIGRAM
     Route: 042
     Dates: start: 20221018, end: 20221018
  51. VANCOMYCIN [Concomitant]
     Active Substance: VANCOMYCIN
     Dosage: 420 MILLIGRAM
     Route: 042
     Dates: start: 20221017, end: 20221017
  52. VANCOMYCIN [Concomitant]
     Active Substance: VANCOMYCIN
     Dosage: 500 MILLIGRAM
     Route: 042
     Dates: start: 20221019, end: 20221019
  53. VANCOMYCIN [Concomitant]
     Active Substance: VANCOMYCIN
     Dosage: 420 MILLIGRAM
     Route: 042
     Dates: start: 20221021, end: 20221021
  54. VANCOMYCIN [Concomitant]
     Active Substance: VANCOMYCIN
     Dosage: 460 MILLIGRAM
     Route: 042
     Dates: start: 20221022, end: 20221022
  55. VANCOMYCIN [Concomitant]
     Active Substance: VANCOMYCIN
     Dosage: 500 MILLIGRAM
     Route: 042
     Dates: start: 20221023, end: 20221026
  56. FUROSEMIDE [Concomitant]
     Active Substance: FUROSEMIDE
     Dosage: UNK
     Route: 042
     Dates: start: 20221013, end: 20221026
  57. FUROSEMIDE [Concomitant]
     Active Substance: FUROSEMIDE
     Dosage: 12 MILLIGRAM
     Route: 042
     Dates: start: 20221013, end: 20221015
  58. FUROSEMIDE [Concomitant]
     Active Substance: FUROSEMIDE
     Dosage: 12 MILLIGRAM
     Route: 042
     Dates: start: 20221016, end: 20221016
  59. FUROSEMIDE [Concomitant]
     Active Substance: FUROSEMIDE
     Dosage: 12 MILLIGRAM
     Route: 042
     Dates: start: 20221017, end: 20221022
  60. FUROSEMIDE [Concomitant]
     Active Substance: FUROSEMIDE
     Dosage: 5 MILLIGRAM
     Route: 042
     Dates: start: 20221023, end: 20221026
  61. LEVETIRACETAM [Concomitant]
     Active Substance: LEVETIRACETAM
     Dosage: UNK
     Dates: start: 20220216
  62. LEVETIRACETAM [Concomitant]
     Active Substance: LEVETIRACETAM
     Dosage: 500 MILLIGRAM
     Route: 048
     Dates: start: 20220216, end: 20221022
  63. LEVETIRACETAM [Concomitant]
     Active Substance: LEVETIRACETAM
     Dosage: 675 MILLIGRAM
     Route: 042
     Dates: start: 20221023
  64. AMLODIPINE [Concomitant]
     Active Substance: AMLODIPINE BESYLATE
     Dosage: UNK
     Route: 048
     Dates: start: 20221016
  65. AMLODIPINE [Concomitant]
     Active Substance: AMLODIPINE BESYLATE
     Dosage: 2.5 MILLIGRAM
     Route: 048
     Dates: start: 20221016, end: 20221019
  66. AMLODIPINE [Concomitant]
     Active Substance: AMLODIPINE BESYLATE
     Dosage: 5 MILLIGRAM
     Route: 048
     Dates: start: 20221020, end: 20221112
  67. HYDRALAZINE [Concomitant]
     Active Substance: HYDRALAZINE HYDROCHLORIDE
     Dosage: UNK
     Route: 042
     Dates: start: 20221020
  68. HYDRALAZINE [Concomitant]
     Active Substance: HYDRALAZINE HYDROCHLORIDE
     Dosage: 3 MILLIGRAM
     Route: 042
     Dates: start: 20221020, end: 20221022
  69. HYDRALAZINE [Concomitant]
     Active Substance: HYDRALAZINE HYDROCHLORIDE
     Dosage: 6 MILLIGRAM
     Route: 042
     Dates: start: 20221023
  70. LABETALOL [Concomitant]
     Active Substance: LABETALOL\LABETALOL HYDROCHLORIDE
     Dosage: UNK
     Dates: start: 20221022, end: 20221106
  71. LABETALOL [Concomitant]
     Active Substance: LABETALOL\LABETALOL HYDROCHLORIDE
     Dosage: 0.9 MILLIGRAM/KILOGRAM
     Route: 042
     Dates: start: 20221029, end: 20221029
  72. LABETALOL [Concomitant]
     Active Substance: LABETALOL\LABETALOL HYDROCHLORIDE
     Dosage: 1.3 MILLIGRAM/KILOGRAM
     Route: 042
     Dates: start: 20221030, end: 20221031
  73. LABETALOL [Concomitant]
     Active Substance: LABETALOL\LABETALOL HYDROCHLORIDE
     Dosage: 80 MILLIGRAM
     Route: 048
     Dates: start: 20221101, end: 20221105
  74. LABETALOL [Concomitant]
     Active Substance: LABETALOL\LABETALOL HYDROCHLORIDE
     Dosage: 70 MILLIGRAM
     Route: 048
     Dates: start: 20221106, end: 20221106
  75. LABETALOL [Concomitant]
     Active Substance: LABETALOL\LABETALOL HYDROCHLORIDE
     Dosage: 15 MILLIGRAM
     Route: 048
     Dates: start: 20221022, end: 20221022
  76. LABETALOL [Concomitant]
     Active Substance: LABETALOL\LABETALOL HYDROCHLORIDE
     Dosage: 25 MILLIGRAM
     Route: 048
     Dates: start: 20221023, end: 20221023
  77. LABETALOL [Concomitant]
     Active Substance: LABETALOL\LABETALOL HYDROCHLORIDE
     Dosage: 132 MILLIGRAM
     Route: 042
     Dates: start: 20221024, end: 20221024
  78. LABETALOL [Concomitant]
     Active Substance: LABETALOL\LABETALOL HYDROCHLORIDE
     Dosage: 100 MILLIGRAM
     Route: 042
     Dates: start: 20221025, end: 20221025
  79. LABETALOL [Concomitant]
     Active Substance: LABETALOL\LABETALOL HYDROCHLORIDE
     Dosage: 0.7 MILLIGRAM/KILOGRAM
     Route: 042
     Dates: start: 20221026, end: 20221026
  80. LABETALOL [Concomitant]
     Active Substance: LABETALOL\LABETALOL HYDROCHLORIDE
     Dosage: UNK
  81. LABETALOL [Concomitant]
     Active Substance: LABETALOL\LABETALOL HYDROCHLORIDE
     Dosage: UNK
  82. MEROPENEM [Concomitant]
     Active Substance: MEROPENEM
     Dosage: UNK
     Route: 042
     Dates: start: 20221022, end: 20221103
  83. MEROPENEM [Concomitant]
     Active Substance: MEROPENEM
     Route: 042
     Dates: start: 20221022, end: 20221023
  84. MEROPENEM [Concomitant]
     Active Substance: MEROPENEM
     Route: 042
     Dates: start: 20221024, end: 20221024
  85. MEROPENEM [Concomitant]
     Active Substance: MEROPENEM
     Dosage: 560 MILLIGRAM
     Route: 042
     Dates: start: 20221024, end: 20221103
  86. MERCAPTOPURINE [Concomitant]
     Active Substance: MERCAPTOPURINE
     Dosage: 57 MILLIGRAM
     Dates: start: 20221006, end: 20221019
  87. CYTARABINE [Concomitant]
     Active Substance: CYTARABINE
     Dosage: 71 MILLIGRAM
     Route: 042
     Dates: start: 20221006, end: 20221016
  88. CYTARABINE [Concomitant]
     Active Substance: CYTARABINE
  89. CYTARABINE [Concomitant]
     Active Substance: CYTARABINE
  90. CYTARABINE [Concomitant]
     Active Substance: CYTARABINE
  91. CYTARABINE [Concomitant]
     Active Substance: CYTARABINE
  92. CYTARABINE [Concomitant]
     Active Substance: CYTARABINE
  93. CYTARABINE [Concomitant]
     Active Substance: CYTARABINE
  94. CYTARABINE [Concomitant]
     Active Substance: CYTARABINE
  95. CYTARABINE [Concomitant]
     Active Substance: CYTARABINE
  96. LORAZEPAM [Concomitant]
     Active Substance: LORAZEPAM
     Dosage: 0.5 MILLIGRAM
     Route: 048
     Dates: start: 20220728

REACTIONS (1)
  - Seizure [Recovered/Resolved]

NARRATIVE: CASE EVENT DATE: 20221023
